FAERS Safety Report 19155233 (Version 2)
Quarter: 2021Q2

REPORT INFORMATION
  Report Type: Spontaneous
  Country: US (occurrence: US)
  Receive Date: 20210420
  Receipt Date: 20210502
  Transmission Date: 20210717
  Serious: No
  Sender: FDA-Public Use
  Company Number: US-LUPIN PHARMACEUTICALS INC.-2021-04798

PATIENT

DRUGS (1)
  1. PHENELZINE TABLET 15 MG [Suspect]
     Active Substance: PHENELZINE
     Indication: ANXIETY
     Dosage: UNK
     Route: 048

REACTIONS (3)
  - Anxiety [Unknown]
  - Product substitution issue [Unknown]
  - Headache [Unknown]
